FAERS Safety Report 15891673 (Version 1)
Quarter: 2019Q1

REPORT INFORMATION
  Report Type: Spontaneous
  Country: US (occurrence: US)
  Receive Date: 20190130
  Receipt Date: 20190130
  Transmission Date: 20190417
  Serious: Yes (Life-Threatening, Hospitalization, Other)
  Sender: FDA-Public Use
  Company Number: US-NATCO PHARMA-2019NAT00006

PATIENT
  Age: 62 Year
  Sex: Female

DRUGS (1)
  1. AZACITIDINE. [Suspect]
     Active Substance: AZACITIDINE
     Indication: ACUTE MYELOID LEUKAEMIA
     Dosage: 75 MG/M2, 1X/DAY (ON DAYS 1 THROUGH 7 OF EACH CYCLE)
     Route: 058

REACTIONS (3)
  - Philadelphia chromosome positive [Recovered/Resolved]
  - Leukaemia cutis [Unknown]
  - Acute myeloid leukaemia [Not Recovered/Not Resolved]
